FAERS Safety Report 12782803 (Version 1)
Quarter: 2016Q3

REPORT INFORMATION
  Report Type: Report from Study
  Country: US (occurrence: US)
  Receive Date: 20160927
  Receipt Date: 20160927
  Transmission Date: 20161109
  Serious: Yes (Life-Threatening, Other)
  Sender: FDA-Public Use
  Company Number: US-ROCHE-1078577

PATIENT
  Age: 73 Year
  Sex: Female
  Weight: 57.4 kg

DRUGS (6)
  1. CARBOPLATIN. [Suspect]
     Active Substance: CARBOPLATIN
     Dosage: PRIOR RADIOTHERAPY, LAST DOSE PRIOR TO SAE 07/MAR/2012, AUC = 5
     Route: 042
     Dates: start: 20111123
  2. CARBOPLATIN. [Suspect]
     Active Substance: CARBOPLATIN
     Indication: ENDOMETRIAL CANCER
     Dosage: AUC = 6, LAST DOSE PRIOR TO SAE 07/MAR/2012,NO PRIOR RADIOTHERAPY
     Route: 042
     Dates: start: 20111123
  3. BEVACIZUMAB [Suspect]
     Active Substance: BEVACIZUMAB
     Indication: ENDOMETRIAL CANCER
     Dosage: (STARTING WITH CYCLE 2 FOR THOSE PATIENTS ENTERING POST SURGERY) X 6 CYCLES, NO PRIOR RADIOTHERAPY,
     Route: 042
     Dates: start: 20111123
  4. PACLITAXEL. [Suspect]
     Active Substance: PACLITAXEL
     Dosage: PRIOR RADIOTHERAPY, LAST DOSE ADMINISTERED 07/MAR/2012
     Route: 042
     Dates: start: 20111123
  5. BEVACIZUMAB [Suspect]
     Active Substance: BEVACIZUMAB
     Dosage: MAINTENANCE THERAPY, LAST DOSE PRIOR TO SAE 07/MAR/2012, CYCLE 7 PLUS
     Route: 042
     Dates: start: 20111123
  6. PACLITAXEL. [Suspect]
     Active Substance: PACLITAXEL
     Indication: ENDOMETRIAL CANCER
     Dosage: NO PRIOR RADIOTHERAPY, LAST DOSE PRIOR TO SAE 07/MAR/2012
     Route: 042
     Dates: start: 20111123

REACTIONS (3)
  - Neutrophil count decreased [Unknown]
  - Neutrophil count decreased [Recovered/Resolved]
  - Anaemia [Unknown]

NARRATIVE: CASE EVENT DATE: 20120321
